FAERS Safety Report 6132590-5 (Version None)
Quarter: 2009Q1

REPORT INFORMATION
  Report Type: 
  Country: None (occurrence: None)
  Receive Date: 20090324
  Receipt Date: 20090313
  Transmission Date: 20090719
  Serious: Yes (Hospitalization)
  Sender: FDA-Public Use
  Company Number: GXKR2009BR03374

PATIENT
  Age: 33 Year
  Sex: Male
  Weight: 75 kg

DRUGS (1)
  1. TRILAX (NGX)(CAFFEINE, CARISOPRODOL, DICLOFENAC, PARACETAMOL) UNKNOWN [Suspect]
     Indication: SCIATICA
     Dosage: BID, ORAL
     Route: 048
     Dates: start: 20090301

REACTIONS (3)
  - ABDOMINAL PAIN UPPER [None]
  - GASTRIC PERFORATION [None]
  - NAUSEA [None]
